FAERS Safety Report 24439721 (Version 2)
Quarter: 2024Q4

REPORT INFORMATION
  Report Type: Spontaneous
  Country: CA (occurrence: CA)
  Receive Date: 20241015
  Receipt Date: 20241029
  Transmission Date: 20250114
  Serious: Yes (Other)
  Sender: ICU MEDICAL
  Company Number: CA-ICU MEDICAL, INC.-ICU2024CA00021

PATIENT

DRUGS (1)
  1. SODIUM CHLORIDE [Suspect]
     Active Substance: SODIUM CHLORIDE
     Indication: Product used for unknown indication
     Dosage: UNK
     Route: 065

REACTIONS (2)
  - Air embolism [Unknown]
  - Product quality issue [Unknown]

NARRATIVE: CASE EVENT DATE: 20240928
